FAERS Safety Report 17884302 (Version 2)
Quarter: 2020Q3

REPORT INFORMATION
  Report Type: Spontaneous
  Country: CA (occurrence: CA)
  Receive Date: 20200611
  Receipt Date: 20200914
  Transmission Date: 20201103
  Serious: Yes (Hospitalization, Other)
  Sender: FDA-Public Use
  Company Number: CA-ACCORD-184632

PATIENT
  Age: 76 Year
  Sex: Male

DRUGS (4)
  1. ZOPICLONE [Concomitant]
     Active Substance: ZOPICLONE
  2. QUETIAPINE. [Suspect]
     Active Substance: QUETIAPINE
     Indication: SCHIZOPHRENIA
     Dosage: 1 EVERY 1 DAYS
     Route: 048
  3. TRAZODONE [Suspect]
     Active Substance: TRAZODONE HYDROCHLORIDE
     Indication: SCHIZOPHRENIA
     Dosage: 1 EVERY 1 DAYS
     Route: 048
  4. BUPROPION XL [Concomitant]
     Active Substance: BUPROPION

REACTIONS (3)
  - Delirium febrile [Unknown]
  - Confusional state [Unknown]
  - Pyrexia [Unknown]
